FAERS Safety Report 9475189 (Version 1)
Quarter: 2013Q3

REPORT INFORMATION
  Report Type: Spontaneous
  Country: IT (occurrence: IT)
  Receive Date: 20130825
  Receipt Date: 20130825
  Transmission Date: 20140515
  Serious: Yes (Other)
  Sender: FDA-Public Use
  Company Number: PHHY2013IT089881

PATIENT
  Age: 47 Year
  Sex: Female

DRUGS (8)
  1. CICLOSPORIN [Suspect]
     Indication: PROPHYLAXIS AGAINST GRAFT VERSUS HOST DISEASE
     Dosage: 4 MG/KG
  2. CICLOSPORIN [Suspect]
     Dosage: 3 MG/KG
  3. CICLOSPORIN [Suspect]
     Dosage: 1 MG/KG
  4. METHYLPREDNISOLONE [Suspect]
     Indication: ACUTE GRAFT VERSUS HOST DISEASE
     Dosage: 2 MG/KG, UNK
  5. METHYLPREDNISOLONE [Suspect]
     Dosage: 1 MG/KG, UNK
  6. METHYLPREDNISOLONE [Suspect]
     Dosage: 0.5 MG/KG, UNK
  7. CYCLOPHOSPHAMIDE [Concomitant]
  8. FLUDARABINE [Concomitant]

REACTIONS (8)
  - Acute graft versus host disease in intestine [Recovered/Resolved]
  - Acute graft versus host disease in skin [Recovered/Resolved]
  - Acute graft versus host disease in liver [Recovered/Resolved]
  - Chronic graft versus host disease [Unknown]
  - Chronic graft versus host disease in skin [Unknown]
  - Sjogren^s syndrome [Unknown]
  - Acute graft versus host disease [Unknown]
  - Drug effect incomplete [Unknown]
